FAERS Safety Report 25904080 (Version 1)
Quarter: 2025Q4

REPORT INFORMATION
  Report Type: Spontaneous
  Country: EU (occurrence: EU)
  Receive Date: 20251010
  Receipt Date: 20251010
  Transmission Date: 20260118
  Serious: Yes (Hospitalization)
  Sender: MERCK SHARP & DOHME LLC
  Company Number: EU-PEI-202500021205

PATIENT
  Age: 20 Month
  Sex: Male

DRUGS (2)
  1. MEASLES-MUMPS-RUBELLA-VARICELLA VIRUS VACCINE, LIVE [Suspect]
     Active Substance: MEASLES-MUMPS-RUBELLA-VARICELLA VIRUS VACCINE, LIVE
     Indication: Immunisation
     Dosage: 1 DOSE
     Dates: start: 20250918, end: 20250918
  2. MEASLES-MUMPS-RUBELLA-VARICELLA VIRUS VACCINE, LIVE [Suspect]
     Active Substance: MEASLES-MUMPS-RUBELLA-VARICELLA VIRUS VACCINE, LIVE

REACTIONS (1)
  - Febrile convulsion [Recovered/Resolved]

NARRATIVE: CASE EVENT DATE: 20250919
